FAERS Safety Report 25099316 (Version 1)
Quarter: 2025Q1

REPORT INFORMATION
  Report Type: Spontaneous
  Country: US (occurrence: None)
  Receive Date: 20250319
  Receipt Date: 20250319
  Transmission Date: 20250408
  Serious: Yes (Hospitalization)
  Sender: FDA-CTU
  Company Number: None

PATIENT
  Sex: Female

DRUGS (3)
  1. DEFERASIROX [Suspect]
     Active Substance: DEFERASIROX
     Indication: Sickle cell disease
     Dosage: FREQUENCY : DAILY;?
     Route: 048
     Dates: start: 202404
  2. METHADONE [Concomitant]
     Active Substance: METHADONE HYDROCHLORIDE
  3. BUPRENORPHINE [Concomitant]
     Active Substance: BUPRENORPHINE

REACTIONS (1)
  - Sickle cell anaemia with crisis [None]
